FAERS Safety Report 8945277 (Version 1)
Quarter: 2012Q4

REPORT INFORMATION
  Report Type: 
  Country: GB (occurrence: GB)
  Receive Date: 20121205
  Receipt Date: 20121205
  Transmission Date: 20130627
  Serious: Yes (Other)
  Sender: FDA-Public Use
  Company Number: GB-PFIZER INC-2012300342

PATIENT
  Age: 53 Year
  Sex: Female

DRUGS (2)
  1. SUTENT [Suspect]
     Indication: CANCER (NOS)
     Dosage: 37.5 mg, UNK
     Route: 048
  2. SUTENT [Suspect]
     Dosage: 50 mg, UNK

REACTIONS (1)
  - Dementia [Recovered/Resolved]
